FAERS Safety Report 17197931 (Version 1)
Quarter: 2019Q4

REPORT INFORMATION
  Report Type: Spontaneous
  Country: US (occurrence: US)
  Receive Date: 20191225
  Receipt Date: 20191225
  Transmission Date: 20200122
  Serious: No
  Sender: FDA-Public Use
  Company Number: NVSC2019US077726

PATIENT
  Sex: Female

DRUGS (1)
  1. ILARIS [Suspect]
     Active Substance: CANAKINUMAB
     Indication: POLYARTHRITIS
     Dosage: 150 MG, Q3W
     Route: 058
     Dates: start: 20181214

REACTIONS (4)
  - Chills [Unknown]
  - Influenza like illness [Unknown]
  - Pyrexia [Unknown]
  - Oropharyngeal pain [Unknown]
